FAERS Safety Report 12468341 (Version 1)
Quarter: 2016Q2

REPORT INFORMATION
  Report Type: Spontaneous
  Country: BR (occurrence: BR)
  Receive Date: 20160615
  Receipt Date: 20160615
  Transmission Date: 20160815
  Serious: Yes (Hospitalization)
  Sender: FDA-Public Use
  Company Number: BR-PFIZER INC-2016213025

PATIENT
  Age: 39 Year
  Sex: Female
  Weight: 100 kg

DRUGS (6)
  1. BUP [Concomitant]
     Active Substance: BUPROPION HYDROCHLORIDE
     Indication: ANTIDEPRESSANT THERAPY
     Dosage: 300 MG, DAILY
     Route: 048
     Dates: start: 2014
  2. VELIJA [Concomitant]
     Active Substance: DULOXETINE HYDROCHLORIDE
     Indication: ANTIDEPRESSANT THERAPY
     Dosage: 30 MG, 2X/DAY
     Route: 048
     Dates: start: 201510
  3. PRISTIQ EXTENDED-RELEASE [Concomitant]
     Active Substance: DESVENLAFAXINE SUCCINATE
     Indication: ANTIDEPRESSANT THERAPY
     Dosage: 50 MG, 1X/DAY
     Route: 048
     Dates: start: 2014
  4. TRILEPTAL [Concomitant]
     Active Substance: OXCARBAZEPINE
     Indication: EPILEPSY
     Dosage: 300 MG, 2X/DAY
     Route: 048
     Dates: start: 2012
  5. CELEBRA [Suspect]
     Active Substance: CELECOXIB
     Indication: ANTIINFLAMMATORY THERAPY
     Dosage: 200 MG, 2X/DAY
     Route: 048
     Dates: start: 2015
  6. CELEBRA [Suspect]
     Active Substance: CELECOXIB
     Indication: ANALGESIC THERAPY

REACTIONS (2)
  - Intervertebral disc degeneration [Unknown]
  - Fracture [Unknown]

NARRATIVE: CASE EVENT DATE: 20150530
